FAERS Safety Report 9829217 (Version 1)
Quarter: 2014Q1

REPORT INFORMATION
  Report Type: Report from Study
  Country: US (occurrence: US)
  Receive Date: 20140119
  Receipt Date: 20140119
  Transmission Date: 20141002
  Serious: Yes (Death)
  Sender: FDA-Public Use
  Company Number: US-ROCHE-1321603

PATIENT
  Sex: Male

DRUGS (4)
  1. AVASTIN [Suspect]
     Indication: PRODUCT USED FOR UNKNOWN INDICATION
     Route: 042
     Dates: start: 20110216, end: 20110216
  2. AVASTIN [Suspect]
     Route: 042
     Dates: start: 20110302, end: 20110302
  3. AVASTIN [Suspect]
     Route: 042
     Dates: start: 20110330, end: 20110330
  4. METOPROLOL SUCCINATE [Concomitant]
     Route: 048
     Dates: start: 20110216

REACTIONS (1)
  - Death [Fatal]
